FAERS Safety Report 4509614-1 (Version None)
Quarter: 2004Q4

REPORT INFORMATION
  Report Type: 
  Country: None (occurrence: None)
  Receive Date: 20041124
  Receipt Date: 20041122
  Transmission Date: 20050328
  Serious: Yes (Other)
  Sender: FDA-Public Use
  Company Number: PHBS2004BE15715

PATIENT
  Age: 52 Year
  Sex: Female

DRUGS (2)
  1. LAMISIL [Suspect]
     Indication: NAIL TINEA
     Dosage: 250 MG/D
     Route: 048
     Dates: start: 20041014, end: 20041102
  2. MEDROL [Suspect]

REACTIONS (7)
  - ANAL HAEMORRHAGE [None]
  - EYELID OEDEMA [None]
  - INSOMNIA [None]
  - PRURITUS [None]
  - SKIN LESION [None]
  - SWELLING FACE [None]
  - URTICARIA [None]
